FAERS Safety Report 9467494 (Version 1)
Quarter: 2013Q3

REPORT INFORMATION
  Report Type: Spontaneous
  Country: US (occurrence: None)
  Receive Date: 20130819
  Receipt Date: 20130819
  Transmission Date: 20140515
  Serious: Yes (Hospitalization)
  Sender: FDA-Public Use
  Company Number: None

PATIENT
  Age: 18 Year
  Sex: Male
  Weight: 68.2 kg

DRUGS (4)
  1. CYTARABINE [Suspect]
  2. ETOPOSIDE (VP-16) [Suspect]
  3. HYDROCORTISONE [Suspect]
  4. METHOTREXATE [Suspect]

REACTIONS (3)
  - Cough [None]
  - Fungal infection [None]
  - Aspergillus infection [None]
